FAERS Safety Report 8289170-5 (Version None)
Quarter: 2012Q2

REPORT INFORMATION
  Report Type: 
  Country: None (occurrence: None)
  Receive Date: 20120417
  Receipt Date: 20120403
  Transmission Date: 20120825
  Serious: Yes (Hospitalization)
  Sender: FDA-Public Use
  Company Number: PHHO2008DE15129

PATIENT
  Sex: Male
  Weight: 75 kg

DRUGS (2)
  1. EVEROLIMUS [Suspect]
     Indication: LIVER TRANSPLANT
     Dosage: 2 G, BID
     Route: 048
     Dates: start: 20080917
  2. TACROLIMUS [Suspect]
     Indication: LIVER TRANSPLANT
     Dosage: 2 G, BID
     Route: 048
     Dates: start: 20080917

REACTIONS (4)
  - CHOLANGITIS [None]
  - LIVER TRANSPLANT REJECTION [None]
  - PYREXIA [None]
  - HEPATIC ENZYME INCREASED [None]
